FAERS Safety Report 24166812 (Version 1)
Quarter: 2024Q3

REPORT INFORMATION
  Report Type: Spontaneous
  Country: GB (occurrence: None)
  Receive Date: 20240802
  Receipt Date: 20240802
  Transmission Date: 20241017
  Serious: Yes (Life-Threatening, Hospitalization, Other)
  Sender: ALLEGIS PHARMACEUTICALS
  Company Number: GB-Allegis Pharmaceuticals, LLC-APL202407-000083

PATIENT
  Age: 32 Year
  Sex: Female

DRUGS (10)
  1. NITROGLYCERIN [Suspect]
     Active Substance: NITROGLYCERIN
     Indication: Epidural anaesthesia
     Dosage: 1 DF 1/ TOTAL
  2. NITROGLYCERIN [Suspect]
     Active Substance: NITROGLYCERIN
     Indication: Tocolysis
  3. BUPIVACAINE [Suspect]
     Active Substance: BUPIVACAINE
     Indication: Product used for unknown indication
     Dosage: 1.9 ML OF 0.5 %
  4. DIAMORPHINE [Suspect]
     Active Substance: DIAMORPHINE
     Indication: Product used for unknown indication
  5. DIAMORPHINE [Suspect]
     Active Substance: DIAMORPHINE
     Indication: Tocolysis
  6. THIOPENTAL SODIUM [Concomitant]
     Active Substance: THIOPENTAL SODIUM
     Indication: Product used for unknown indication
  7. SUCCINYLCHOLINE [Concomitant]
     Active Substance: SUCCINYLCHOLINE
     Indication: Product used for unknown indication
  8. MAGNESIUM SULFATE [Concomitant]
     Active Substance: MAGNESIUM SULFATE\MAGNESIUM SULFATE HEPTAHYDRATE
     Indication: Product used for unknown indication
     Dosage: UNKNOWN
  9. AMIODARONE [Concomitant]
     Active Substance: AMIODARONE
     Indication: Product used for unknown indication
     Dosage: UNKNOWN
  10. EPINEPHRINE [Concomitant]
     Active Substance: EPINEPHRINE
     Indication: Product used for unknown indication
     Dosage: UNKNOWN

REACTIONS (4)
  - Cardiac arrest [Recovered/Resolved]
  - Eclampsia [Unknown]
  - Maternal exposure during delivery [Unknown]
  - Product use in unapproved indication [Unknown]
